FAERS Safety Report 4957040-3 (Version None)
Quarter: 2006Q1

REPORT INFORMATION
  Report Type: 
  Country: None (occurrence: None)
  Receive Date: 20060323
  Receipt Date: 20050822
  Transmission Date: 20060701
  Serious: Yes (Other)
  Sender: FDA-Public Use
  Company Number: 12205

PATIENT
  Age: 76 Year
  Sex: Male
  Weight: 83.9154 kg

DRUGS (1)
  1. PACLITAXEL [Suspect]
     Indication: LUNG NEOPLASM MALIGNANT
     Dosage: 100 MG ONCE IV
     Route: 042
     Dates: start: 20050527, end: 20050527

REACTIONS (6)
  - BACK PAIN [None]
  - COUGH [None]
  - DRUG HYPERSENSITIVITY [None]
  - DYSPNOEA [None]
  - ERYTHEMA [None]
  - STOMACH DISCOMFORT [None]
